FAERS Safety Report 14554514 (Version 1)
Quarter: 2018Q1

REPORT INFORMATION
  Report Type: Report from Study
  Country: FR (occurrence: FR)
  Receive Date: 20180220
  Receipt Date: 20180220
  Transmission Date: 20180509
  Serious: Yes (Death, Life-Threatening, Hospitalization, Other)
  Sender: FDA-Public Use
  Company Number: FR-TEVA-2018-FR-857732

PATIENT
  Age: 59 Year
  Sex: Male
  Weight: 97 kg

DRUGS (2)
  1. STREPTOZOCINE [Suspect]
     Active Substance: STREPTOZOCIN
     Indication: CHEMOTHERAPY
     Route: 065
  2. DOXORUBICIN HYDROCHLORIDE. [Suspect]
     Active Substance: DOXORUBICIN HYDROCHLORIDE
     Indication: CHEMOTHERAPY
     Route: 065

REACTIONS (5)
  - Acute kidney injury [Fatal]
  - Neutropenia [Unknown]
  - Lymphocyte count decreased [Unknown]
  - Thrombocytopenia [Unknown]
  - Anaemia [Unknown]

NARRATIVE: CASE EVENT DATE: 20160103
